FAERS Safety Report 5038564-X (Version None)
Quarter: 2006Q2

REPORT INFORMATION
  Report Type: 
  Country: None (occurrence: None)
  Receive Date: 20060629
  Receipt Date: 20060626
  Transmission Date: 20061013
  Serious: Yes (Death, Hospitalization)
  Sender: FDA-Public Use
  Company Number: PHBS2006BR09496

PATIENT
  Age: 77 Year
  Sex: Female

DRUGS (1)
  1. EXELON [Suspect]
     Dosage: 3 MG, UNK
     Route: 048

REACTIONS (5)
  - ABDOMINAL PAIN [None]
  - ASTHENIA [None]
  - DEATH [None]
  - HEPATIC NEOPLASM MALIGNANT [None]
  - SURGERY [None]
